FAERS Safety Report 10232918 (Version 1)
Quarter: 2014Q2

REPORT INFORMATION
  Report Type: Spontaneous
  Country: CA (occurrence: CA)
  Receive Date: 20140612
  Receipt Date: 20140612
  Transmission Date: 20141212
  Serious: Yes (Other)
  Sender: FDA-Public Use
  Company Number: CA-SA-2014SA073738

PATIENT
  Age: 65 Year
  Sex: Male

DRUGS (1)
  1. RIFAMPIN [Suspect]
     Indication: EXPOSURE TO COMMUNICABLE DISEASE
     Route: 065

REACTIONS (3)
  - Dysbacteriosis [Unknown]
  - Influenza like illness [Unknown]
  - Drug intolerance [Unknown]
